FAERS Safety Report 6860363-4 (Version None)
Quarter: 2010Q3

REPORT INFORMATION
  Report Type: 
  Country: None (occurrence: None)
  Receive Date: 20100720
  Receipt Date: 20100712
  Transmission Date: 20110219
  Serious: Yes (Life-Threatening, Hospitalization, Other)
  Sender: FDA-Public Use
  Company Number: PT-CELGENEUS-130-21880-10061423

PATIENT
  Sex: Male
  Weight: 57 kg

DRUGS (8)
  1. REVLIMID [Suspect]
     Indication: MYELOFIBROSIS
     Route: 048
     Dates: start: 20100524, end: 20100630
  2. OMEPRAZOLE [Concomitant]
     Indication: PROPHYLAXIS
     Route: 048
     Dates: start: 20100618
  3. GLYBURIDE [Concomitant]
     Indication: DIABETES MELLITUS
     Route: 048
     Dates: start: 20100618
  4. METFORMIN HCL [Concomitant]
     Indication: DIABETES MELLITUS
     Route: 051
     Dates: start: 20100618
  5. ALLOPURINOL [Concomitant]
     Route: 048
     Dates: start: 20100618
  6. PARACETAMOL [Concomitant]
     Route: 050
     Dates: start: 20100618
  7. SODIUM CHLORET [Concomitant]
     Indication: PRODUCT USED FOR UNKNOWN INDICATION
     Route: 051
     Dates: start: 20100618
  8. AMINAPHTONE [Concomitant]
     Indication: PRODUCT USED FOR UNKNOWN INDICATION
     Route: 048
     Dates: start: 20100628

REACTIONS (4)
  - FATIGUE [None]
  - HAEMOGLOBIN DECREASED [None]
  - NEUTROPHIL COUNT DECREASED [None]
  - PLATELET COUNT DECREASED [None]
